FAERS Safety Report 20028781 (Version 1)
Quarter: 2021Q4

REPORT INFORMATION
  Report Type: Report from Study
  Country: UA (occurrence: UA)
  Receive Date: 20211103
  Receipt Date: 20211103
  Transmission Date: 20220303
  Serious: Yes (Hospitalization)
  Sender: FDA-Public Use
  Company Number: UA-CELGENE-UKR-20211005096

PATIENT
  Sex: Male
  Weight: 78 kg

DRUGS (48)
  1. OZANIMOD [Suspect]
     Active Substance: OZANIMOD
     Indication: Colitis ulcerative
     Dosage: 1 MILLIGRAM
     Route: 048
     Dates: start: 20171019, end: 20171127
  2. OZANIMOD [Suspect]
     Active Substance: OZANIMOD
     Dosage: 1 MILLIGRAM
     Route: 048
     Dates: start: 20171127, end: 20180128
  3. OZANIMOD [Suspect]
     Active Substance: OZANIMOD
     Dosage: 1 MILLIGRAM
     Route: 048
     Dates: start: 20180123, end: 20180306
  4. OZANIMOD [Suspect]
     Active Substance: OZANIMOD
     Dosage: 1 MILLIGRAM
     Route: 048
     Dates: start: 20180306, end: 20180318
  5. OZANIMOD [Suspect]
     Active Substance: OZANIMOD
     Dosage: 1 MILLIGRAM
     Route: 048
     Dates: start: 20180419, end: 20180529
  6. OZANIMOD [Suspect]
     Active Substance: OZANIMOD
     Dosage: 1 MILLIGRAM
     Route: 048
     Dates: start: 20180529, end: 20180626
  7. OZANIMOD [Suspect]
     Active Substance: OZANIMOD
     Dosage: 1 MILLIGRAM
     Route: 048
     Dates: start: 20180626, end: 20180919
  8. OZANIMOD [Suspect]
     Active Substance: OZANIMOD
     Dosage: 1 MILLIGRAM
     Route: 048
     Dates: start: 20180919, end: 20181217
  9. OZANIMOD [Suspect]
     Active Substance: OZANIMOD
     Dosage: 1 MILLIGRAM
     Route: 048
     Dates: start: 20181217, end: 20190306
  10. OZANIMOD [Suspect]
     Active Substance: OZANIMOD
     Dosage: 1 MILLIGRAM
     Route: 048
     Dates: start: 20190306, end: 20190529
  11. OZANIMOD [Suspect]
     Active Substance: OZANIMOD
     Route: 048
     Dates: start: 20190529, end: 20190829
  12. OZANIMOD [Suspect]
     Active Substance: OZANIMOD
     Dosage: 1 MILLIGRAM
     Route: 048
     Dates: start: 20190829, end: 20191121
  13. OZANIMOD [Suspect]
     Active Substance: OZANIMOD
     Dosage: 1 MILLIGRAM
     Route: 048
     Dates: start: 20191121, end: 20200206
  14. OZANIMOD [Suspect]
     Active Substance: OZANIMOD
     Dosage: 1 MILLIGRAM
     Route: 048
     Dates: start: 20200206, end: 20200429
  15. OZANIMOD [Suspect]
     Active Substance: OZANIMOD
     Dosage: 1 MILLIGRAM
     Route: 048
     Dates: start: 20200429, end: 20200728
  16. OZANIMOD [Suspect]
     Active Substance: OZANIMOD
     Route: 048
     Dates: start: 20200728, end: 20201021
  17. OZANIMOD [Suspect]
     Active Substance: OZANIMOD
     Dosage: 1 MILLIGRAM
     Route: 048
     Dates: start: 20201021, end: 20210121
  18. OZANIMOD [Suspect]
     Active Substance: OZANIMOD
     Dosage: 1 MILLIGRAM
     Route: 048
     Dates: start: 20210121, end: 20210407
  19. OZANIMOD [Suspect]
     Active Substance: OZANIMOD
     Dosage: 1 MILLIGRAM
     Route: 048
     Dates: start: 20210407, end: 20210623
  20. OZANIMOD [Suspect]
     Active Substance: OZANIMOD
     Dosage: 1 MILLIGRAM
     Route: 048
     Dates: start: 20210623, end: 20210922
  21. Methyl prednizolone [Concomitant]
     Indication: Colitis ulcerative
     Route: 048
     Dates: start: 20170901, end: 20180408
  22. Methyl prednizolone [Concomitant]
     Route: 048
     Dates: start: 20180409, end: 20180507
  23. Methyl prednizolone [Concomitant]
     Route: 048
     Dates: start: 20180508, end: 20180529
  24. Methyl prednizolone [Concomitant]
     Route: 048
     Dates: start: 20180530, end: 20180626
  25. SULFASALAZINE [Concomitant]
     Active Substance: SULFASALAZINE
     Indication: Colitis ulcerative
     Route: 048
     Dates: start: 20170901, end: 20180731
  26. Lioton gel [Concomitant]
     Indication: Thrombophlebitis
     Route: 061
     Dates: start: 20180118, end: 20180425
  27. DIOSMIN\HESPERIDIN [Concomitant]
     Active Substance: DIOSMIN\HESPERIDIN
     Indication: Thrombophlebitis
     Route: 048
     Dates: start: 20180118, end: 20180425
  28. DIOSMIN\HESPERIDIN [Concomitant]
     Active Substance: DIOSMIN\HESPERIDIN
     Indication: Oedema
     Route: 048
     Dates: start: 20180901
  29. METAMIZOLE SODIUM\TRIACETONAMINE TOSILATE [Concomitant]
     Active Substance: METAMIZOLE SODIUM\TRIACETONAMINE TOSILATE
     Indication: Headache
     Route: 048
     Dates: start: 20180320, end: 20180501
  30. MAGNESIUM ASPARTATE\POTASSIUM ASPARTATE [Concomitant]
     Active Substance: MAGNESIUM ASPARTATE\POTASSIUM ASPARTATE
     Indication: Glucocorticoids abnormal
     Route: 048
     Dates: start: 20180508, end: 20180529
  31. CETIRIZINE HYDROCHLORIDE [Concomitant]
     Active Substance: CETIRIZINE HYDROCHLORIDE
     Indication: Glucocorticoids abnormal
     Route: 048
     Dates: start: 20180508, end: 20180529
  32. Salofalk [Concomitant]
     Indication: Hepatitis
     Route: 048
     Dates: start: 20180801
  33. REMAXOL [Concomitant]
     Indication: Hepatitis
     Route: 041
     Dates: start: 20181031, end: 20181102
  34. Silibor max [Concomitant]
     Indication: Hepatitis
     Route: 048
     Dates: start: 20181030, end: 20181118
  35. Silibor max [Concomitant]
     Route: 048
     Dates: start: 20190317, end: 20190405
  36. URSODIOL [Concomitant]
     Active Substance: URSODIOL
     Indication: Hepatitis
     Route: 048
     Dates: start: 20181030, end: 20181207
  37. URSODIOL [Concomitant]
     Active Substance: URSODIOL
     Indication: Hepatitis cholestatic
     Route: 048
     Dates: start: 20190317, end: 20190420
  38. URSODIOL [Concomitant]
     Active Substance: URSODIOL
     Route: 048
     Dates: start: 20190812, end: 20190812
  39. URSODIOL [Concomitant]
     Active Substance: URSODIOL
     Route: 048
     Dates: start: 20191105, end: 20191202
  40. URSODIOL [Concomitant]
     Active Substance: URSODIOL
     Route: 048
     Dates: start: 20200607, end: 20200706
  41. URSODIOL [Concomitant]
     Active Substance: URSODIOL
     Route: 048
     Dates: start: 20201025, end: 20201119
  42. URSODIOL [Concomitant]
     Active Substance: URSODIOL
     Route: 048
     Dates: start: 20210312, end: 20210411
  43. FENPIVERINIUM BROMIDE\METAMIZOLE SODIUM\PITOFENONE HYDROCHLORIDE [Concomitant]
     Active Substance: FENPIVERINIUM BROMIDE\METAMIZOLE SODIUM\PITOFENONE HYDROCHLORIDE
     Indication: Colonoscopy
     Route: 030
     Dates: start: 20181217, end: 20181217
  44. AFLUBIN [Concomitant]
     Indication: Nasopharyngitis
     Route: 030
     Dates: start: 20190129, end: 20190202
  45. AFLUBIN [Concomitant]
     Route: 048
     Dates: start: 20190112, end: 20190117
  46. AFLUBIN [Concomitant]
     Route: 048
     Dates: start: 20210315, end: 20210316
  47. PANTOPRAZOLE [Concomitant]
     Active Substance: PANTOPRAZOLE
     Indication: Dyspepsia
     Route: 048
     Dates: start: 20200115, end: 20200128
  48. PANTOPRAZOLE [Concomitant]
     Active Substance: PANTOPRAZOLE
     Indication: Optic neuritis
     Route: 048
     Dates: start: 20200430, end: 20200513

REACTIONS (1)
  - COVID-19 [Recovering/Resolving]

NARRATIVE: CASE EVENT DATE: 20211011
